FAERS Safety Report 6023679-X (Version None)
Quarter: 2008Q4

REPORT INFORMATION
  Report Type: 
  Country: None (occurrence: None)
  Receive Date: 20081230
  Receipt Date: 20081230
  Transmission Date: 20090506
  Serious: Yes (Life-Threatening, Hospitalization)
  Sender: FDA-Public Use
  Company Number: US-ASTRAZENECA-2007UW24328

PATIENT
  Age: 54 Year
  Sex: Female

DRUGS (4)
  1. SEROQUEL [Suspect]
     Indication: BIPOLAR I DISORDER
     Route: 048
     Dates: start: 20070522, end: 20071016
  2. CYMBALTA [Concomitant]
     Indication: DEPRESSION
     Dates: start: 20070524
  3. GLYBURIDE [Concomitant]
     Indication: DIABETES MELLITUS
  4. LIPITOR [Concomitant]
     Indication: BLOOD CHOLESTEROL
     Route: 048

REACTIONS (5)
  - COMA [None]
  - FEELING ABNORMAL [None]
  - METABOLIC ACIDOSIS [None]
  - OVERDOSE [None]
  - RENAL FAILURE ACUTE [None]
